FAERS Safety Report 9924546 (Version 1)
Quarter: 2014Q1

REPORT INFORMATION
  Report Type: Spontaneous
  Country: US (occurrence: US)
  Receive Date: 20140226
  Receipt Date: 20140226
  Transmission Date: 20141002
  Serious: No
  Sender: FDA-Public Use
  Company Number: US-PFIZER INC-2014049656

PATIENT
  Age: 55 Year
  Sex: Male

DRUGS (1)
  1. SOMAVERT [Suspect]
     Dosage: UNK
     Dates: start: 2002, end: 2009

REACTIONS (1)
  - Injection site pain [Unknown]
